FAERS Safety Report 15470200 (Version 3)
Quarter: 2019Q2

REPORT INFORMATION
  Report Type: Spontaneous
  Country: PT (occurrence: PT)
  Receive Date: 20181005
  Receipt Date: 20190607
  Transmission Date: 20190711
  Serious: Yes (Other)
  Sender: FDA-Public Use
  Company Number: PT-AMGEN-PRTSP2018136931

PATIENT
  Age: 58 Year
  Sex: Female
  Weight: 66 kg

DRUGS (4)
  1. 5-FU [Concomitant]
     Active Substance: FLUOROURACIL
     Indication: COLORECTAL CANCER METASTATIC
     Dosage: UNK
  2. FOLINIC ACID [Concomitant]
     Active Substance: LEUCOVORIN
     Indication: COLORECTAL CANCER METASTATIC
     Dosage: UNK
  3. OXALIPLATIN. [Concomitant]
     Active Substance: OXALIPLATIN
     Indication: COLORECTAL CANCER METASTATIC
     Dosage: UNK
  4. PANITUMUMAB [Suspect]
     Active Substance: PANITUMUMAB
     Indication: COLORECTAL CANCER METASTATIC
     Dosage: 396 MILLIGRAM, Q2WK (6 MG/KG) IN 100 CC OF SALINE SOLUTION, CYCLE OF 2/2 WEEKS
     Route: 042
     Dates: start: 20180703

REACTIONS (3)
  - Pruritus [Recovered/Resolved]
  - Dermatitis acneiform [Recovered/Resolved]
  - Pain [Recovered/Resolved]

NARRATIVE: CASE EVENT DATE: 20180703
